FAERS Safety Report 5307704-7 (Version None)
Quarter: 2007Q2

REPORT INFORMATION
  Report Type: 
  Country: None (occurrence: None)
  Receive Date: 20070419
  Receipt Date: 20070405
  Transmission Date: 20071010
  Serious: Yes (Death)
  Sender: FDA-Public Use
  Company Number: 2007US000768

PATIENT
  Age: 73 Year
  Sex: Female
  Weight: 107.9 kg

DRUGS (1)
  1. AMEVIVE [Suspect]
     Indication: PSORIASIS
     Dosage: INTRAMUSCULAR
     Route: 030
     Dates: start: 20041029

REACTIONS (1)
  - DEATH [None]
